FAERS Safety Report 9386609 (Version 1)
Quarter: 2013Q3

REPORT INFORMATION
  Report Type: Spontaneous
  Country: US (occurrence: None)
  Receive Date: 20130703
  Receipt Date: 20130703
  Transmission Date: 20140515
  Serious: Yes (Hospitalization)
  Sender: FDA-Public Use
  Company Number: None

PATIENT
  Age: 88 Year
  Sex: Female
  Weight: 46 kg

DRUGS (20)
  1. CEPHALEXIN [Suspect]
     Indication: CELLULITIS
     Route: 048
  2. CLINDAMYCIN 150 MG WATSON /LABS [Suspect]
     Indication: CELLULITIS
     Route: 048
  3. KCI [Concomitant]
  4. FUROSEMIDE [Concomitant]
  5. OXYCODONE/ACETAMINOPHEN [Concomitant]
  6. BISACODYL [Concomitant]
  7. PRN [Concomitant]
  8. DOCUSATE SODIUM [Concomitant]
  9. SENNA/DOCUSATE [Concomitant]
  10. FOLIC ACID [Concomitant]
  11. HYDROCODONE/ACETAMINOPHEN [Concomitant]
  12. IRON POLYSACCHARIDE [Concomitant]
  13. LISINOPRIL [Concomitant]
  14. LACTULOSE [Concomitant]
  15. LOVASTATIN [Concomitant]
  16. METOPROLOL [Concomitant]
  17. NITROGLYCERIN [Concomitant]
  18. PHENYTOIN SUSPENSION [Concomitant]
  19. PROCHLORPERAZINE [Concomitant]
  20. PANTOPRAZOLE [Concomitant]

REACTIONS (2)
  - Hypotension [None]
  - Rash [None]
